FAERS Safety Report 13918116 (Version 4)
Quarter: 2019Q4

REPORT INFORMATION
  Report Type: Other
  Country: FR (occurrence: FR)
  Receive Date: 20170829
  Receipt Date: 20191203
  Transmission Date: 20200122
  Serious: Yes (Hospitalization, Other)
  Sender: FDA-Public Use
  Company Number: FR-VALIDUS PHARMACEUTICALS LLC-FR-2017VAL001283

PATIENT

DRUGS (13)
  1. SULFAMETHOXAZOLE AND TRIMETHOPRIM [Suspect]
     Active Substance: SULFAMETHOXAZOLE\TRIMETHOPRIM
     Indication: PROPHYLAXIS
     Dosage: 2 DF, TIW (0.8571 DF)
     Route: 048
     Dates: start: 20170729, end: 20170807
  2. IBUPROFEN. [Suspect]
     Active Substance: IBUPROFEN
     Indication: PYREXIA
     Dosage: 750 MG, QD
     Route: 048
     Dates: start: 20170731, end: 20170804
  3. FUROSEMIDE. [Suspect]
     Active Substance: FUROSEMIDE
     Indication: PROPHYLAXIS
     Dosage: 25 MG, QD
     Route: 048
     Dates: start: 20170717, end: 20170804
  4. VANCOMYCIN [Suspect]
     Active Substance: VANCOMYCIN
     Indication: PYREXIA
     Dosage: 625 MG, BID
     Route: 041
     Dates: start: 20170718, end: 20170804
  5. ONDANSETRON [Suspect]
     Active Substance: ONDANSETRON
     Indication: VOMITING
     Dosage: 1 DF, PRN (5 TAKEN) 5 DOSES (1 DF, 1 ON DEMAND)
     Route: 048
     Dates: start: 20170722, end: 20170806
  6. FERROSTRANE [Suspect]
     Active Substance: SODIUM FEREDETATE
     Indication: MICROCYTIC ANAEMIA
     Dosage: 0.5 DF, QD
     Route: 048
     Dates: start: 20170720, end: 20170807
  7. KARDEGIC [Concomitant]
     Active Substance: ASPIRIN DL-LYSINE
     Indication: PRODUCT USED FOR UNKNOWN INDICATION
     Dosage: UNK
     Dates: start: 20170708
  8. PARACETAMOL [Concomitant]
     Active Substance: ACETAMINOPHEN
     Indication: PRODUCT USED FOR UNKNOWN INDICATION
     Dosage: UNK
     Dates: start: 20170717
  9. GENTAMICIN SULFATE. [Suspect]
     Active Substance: GENTAMICIN SULFATE
     Indication: PYREXIA
     Dosage: 125 MG, QD
     Route: 042
     Dates: start: 20170718, end: 20170804
  10. PRIVIGEN [Suspect]
     Active Substance: HUMAN IMMUNOGLOBULIN G
     Indication: IMMUNOSUPPRESSION
     Dosage: 3 DF, QCY
     Route: 065
     Dates: start: 20170722, end: 20170722
  11. IBUPROFEN. [Suspect]
     Active Substance: IBUPROFEN
     Dosage: 250 MG, TID
     Route: 048
     Dates: start: 20170731, end: 20170804
  12. AMBISOME [Suspect]
     Active Substance: AMPHOTERICIN B
     Indication: PYREXIA
     Dosage: 75 MG, QD
     Route: 041
     Dates: start: 20170726, end: 20170804
  13. PRIVIGEN [Suspect]
     Active Substance: HUMAN IMMUNOGLOBULIN G
     Dosage: 3 DF, QCY
     Route: 048
     Dates: start: 20170724, end: 20170724

REACTIONS (6)
  - Lymphadenopathy [Recovered/Resolved]
  - Renal failure [Unknown]
  - Pyrexia [Recovered/Resolved]
  - Rash [Recovered/Resolved]
  - Pancytopenia [Recovered/Resolved]
  - Antibiotic level above therapeutic [Unknown]

NARRATIVE: CASE EVENT DATE: 20170724
